FAERS Safety Report 21854602 (Version 1)
Quarter: 2023Q1

REPORT INFORMATION
  Report Type: Spontaneous
  Country: US (occurrence: None)
  Receive Date: 20230112
  Receipt Date: 20230112
  Transmission Date: 20230418
  Serious: Yes (Hospitalization)
  Sender: FDA-Public Use
  Company Number: None

PATIENT
  Sex: Male
  Weight: 84.4 kg

DRUGS (13)
  1. APALUTAMIDE [Suspect]
     Active Substance: APALUTAMIDE
  2. LEUPROLIDE ACETATE [Concomitant]
  3. APIXABAN [Concomitant]
  4. CICLOPIROX [Concomitant]
  5. COMPAZINE [Concomitant]
  6. DITROPAN [Concomitant]
  7. GABAPENTIN [Concomitant]
  8. HYDROCHLOROTHIAZIDE [Concomitant]
  9. LOVENOX [Concomitant]
  10. NARCAN [Concomitant]
  11. OXYCODONE [Concomitant]
  12. PYRIDIUM [Concomitant]
  13. VIAGRA [Concomitant]

REACTIONS (1)
  - Pelvic infection [None]

NARRATIVE: CASE EVENT DATE: 20230110
